FAERS Safety Report 9861960 (Version 1)
Quarter: 2014Q1

REPORT INFORMATION
  Report Type: Spontaneous
  Country: US (occurrence: None)
  Receive Date: 20140131
  Receipt Date: 20140131
  Transmission Date: 20141002
  Serious: Yes (Other)
  Sender: FDA-Public Use
  Company Number: None

PATIENT
  Age: 80 Year
  Sex: Male
  Weight: 70.76 kg

DRUGS (5)
  1. MARCAINE SPINAL [Suspect]
     Indication: SPINAL ANAESTHESIA
     Dosage: 2ML ONCE SPINAL
     Route: 037
     Dates: start: 20140127, end: 20140127
  2. CEFAZOLIN [Concomitant]
  3. MIDAZOLAM [Concomitant]
  4. ONDANSETRON [Concomitant]
  5. PROPOFOL [Concomitant]

REACTIONS (1)
  - Inadequate analgesia [None]
